FAERS Safety Report 24443292 (Version 2)
Quarter: 2024Q4

REPORT INFORMATION
  Report Type: Spontaneous
  Country: JP (occurrence: JP)
  Receive Date: 20241016
  Receipt Date: 20241114
  Transmission Date: 20250114
  Serious: Yes (Other)
  Sender: BOEHRINGER INGELHEIM
  Company Number: JP-NBI-2024-BI-057165

PATIENT
  Age: 8 Decade
  Sex: Male

DRUGS (2)
  1. SPEVIGO [Suspect]
     Active Substance: SPESOLIMAB-SBZO
     Indication: Pustular psoriasis
     Dosage: ADMINISTERED TWICE.
     Route: 042
     Dates: start: 20240911
  2. SPEVIGO [Suspect]
     Active Substance: SPESOLIMAB-SBZO
     Dosage: ADMINISTERED TWICE.
     Route: 042
     Dates: start: 20240918

REACTIONS (1)
  - Sepsis [Recovered/Resolved]
